FAERS Safety Report 6039572-2 (Version None)
Quarter: 2009Q1

REPORT INFORMATION
  Report Type: 
  Country: None (occurrence: None)
  Receive Date: 20090116
  Receipt Date: 20090113
  Transmission Date: 20090719
  Serious: Yes (Death)
  Sender: FDA-Public Use
  Company Number: JP-JNJFOC-20081206524

PATIENT
  Age: 63 Year
  Sex: Male

DRUGS (5)
  1. FENTANYL CITRATE [Suspect]
     Route: 062
  2. FENTANYL CITRATE [Suspect]
     Indication: CANCER PAIN
     Route: 062
  3. OXYCODONE HYDROCHLORIDE HYDRATE [Concomitant]
     Indication: PAIN MANAGEMENT
     Route: 065
  4. DICLOFENAC SODIUM [Concomitant]
     Indication: PAIN MANAGEMENT
     Route: 065
  5. FLURBIPROFEN AXETIL [Concomitant]
     Route: 065

REACTIONS (2)
  - NEOPLASM MALIGNANT [None]
  - SOMNOLENCE [None]
